FAERS Safety Report 9286921 (Version 1)
Quarter: 2013Q2

REPORT INFORMATION
  Report Type: Spontaneous
  Country: US (occurrence: US)
  Receive Date: 20130513
  Receipt Date: 20130513
  Transmission Date: 20140414
  Serious: Yes (Other)
  Sender: FDA-Public Use
  Company Number: US-ASTRAZENECA-2013SE30866

PATIENT
  Age: 83 Year
  Sex: Female
  Weight: 54.4 kg

DRUGS (9)
  1. TOPROL XL [Suspect]
     Indication: PALPITATIONS
     Route: 048
     Dates: start: 2007
  2. TOPROL XL [Suspect]
     Indication: EXTRASYSTOLES
     Route: 048
     Dates: start: 2007
  3. TOPROL XL [Suspect]
     Indication: PALPITATIONS
     Route: 048
     Dates: start: 2012
  4. TOPROL XL [Suspect]
     Indication: EXTRASYSTOLES
     Route: 048
     Dates: start: 2012
  5. CRESTOR [Suspect]
     Indication: BLOOD CHOLESTEROL INCREASED
     Dosage: ONE HALF 10 MG TABLE DAILY
     Route: 048
  6. BABY ASPIRIN [Concomitant]
     Indication: PRODUCT USED FOR UNKNOWN INDICATION
  7. TYLENOL [Concomitant]
     Indication: ARTHRITIS
     Dosage: DAILY
  8. LEVOTHYROXINE [Concomitant]
  9. POTASSIUM CHLORIDE [Concomitant]

REACTIONS (13)
  - Arthritis [Unknown]
  - Fracture [Unknown]
  - Palpitations [Not Recovered/Not Resolved]
  - Extrasystoles [Not Recovered/Not Resolved]
  - Muscle spasms [Not Recovered/Not Resolved]
  - Muscle spasms [Not Recovered/Not Resolved]
  - Abdominal pain upper [Not Recovered/Not Resolved]
  - Blood cholesterol increased [Unknown]
  - Muscular weakness [Unknown]
  - Blood potassium decreased [Unknown]
  - Intentional drug misuse [Not Recovered/Not Resolved]
  - Intentional drug misuse [Not Recovered/Not Resolved]
  - Drug dose omission [Unknown]
